FAERS Safety Report 6706614-8 (Version None)
Quarter: 2010Q2

REPORT INFORMATION
  Report Type: 
  Country: None (occurrence: None)
  Receive Date: 20100503
  Receipt Date: 20100422
  Transmission Date: 20101027
  Serious: Yes (Death)
  Sender: FDA-Public Use
  Company Number: US-ROCHE-689346

PATIENT
  Sex: Female
  Weight: 60.3 kg

DRUGS (1)
  1. CAPECITABINE [Suspect]
     Dosage: 14 DAYS OF 21 DAY.
     Route: 048
     Dates: start: 20091023, end: 20100201

REACTIONS (1)
  - DEATH [None]
